FAERS Safety Report 6012528-1 (Version None)
Quarter: 2008Q4

REPORT INFORMATION
  Report Type: 
  Country: None (occurrence: None)
  Receive Date: 20081218
  Receipt Date: 20081210
  Transmission Date: 20090506
  Serious: Yes (Hospitalization)
  Sender: FDA-Public Use
  Company Number: US-B.I. PHARMACEUTICALS,INC./RIDGEFIELD-2008-DE-07604GD

PATIENT
  Age: 24 Year
  Sex: Female

DRUGS (15)
  1. IPRATROPIUMBROMID [Suspect]
     Indication: COUGH
     Route: 055
  2. MORPHINE [Suspect]
     Indication: COUGH
     Dosage: 30MG
     Route: 048
  3. MORPHINE [Suspect]
     Indication: PAIN
     Dosage: CONTINUOUS INFUSION OF 0.5 MG/H
     Route: 042
  4. HYDROCODONE BITARTRATE [Suspect]
     Indication: COUGH
     Dosage: 30MG
  5. HYDROCODONE BITARTRATE [Suspect]
     Dosage: 5 MG EVERY H AS NEEDED
  6. DEXAMETHASONE [Suspect]
     Indication: COUGH
     Dosage: 4MG
  7. BENZONATATE [Suspect]
     Indication: COUGH
     Dosage: 300MG
     Route: 048
  8. ALBUTEROL [Suspect]
     Indication: COUGH
     Route: 055
  9. INTRAVENOUS FLUIDS [Concomitant]
     Indication: DEHYDRATION
     Route: 042
  10. METOCLOPRAMIDE [Concomitant]
     Indication: VOMITING
     Dosage: 60MG
  11. FAMOTIDINE [Concomitant]
  12. MEGESTROL ACETATE [Concomitant]
     Indication: APPETITE DISORDER
  13. OXYCODONE [Concomitant]
     Indication: PAIN
  14. INTERFERON ALFA [Concomitant]
     Indication: RENAL CELL CARCINOMA
  15. CAPECITABINE [Concomitant]
     Indication: RENAL CELL CARCINOMA

REACTIONS (1)
  - DRUG INEFFECTIVE [None]
